FAERS Safety Report 4886043-2 (Version None)
Quarter: 2006Q1

REPORT INFORMATION
  Report Type: 
  Country: None (occurrence: None)
  Receive Date: 20060117
  Receipt Date: 20060106
  Transmission Date: 20060701
  Serious: Yes (Hospitalization)
  Sender: FDA-Public Use
  Company Number: 2006-01-0385

PATIENT
  Sex: Male

DRUGS (8)
  1. CELESTONE [Suspect]
     Indication: LIMB INJURY
     Dosage: 1 AMP Q 6-8W INTRA-ARTIC
     Route: 014
     Dates: start: 20051101, end: 20060105
  2. CELESTONE [Suspect]
     Indication: PAIN
     Dosage: 1 AMP Q 6-8W INTRA-ARTIC
     Route: 014
     Dates: start: 20051101, end: 20060105
  3. CELESTONE [Suspect]
     Indication: ROAD TRAFFIC ACCIDENT
     Dosage: 1 AMP Q 6-8W INTRA-ARTIC
     Route: 014
     Dates: start: 20051101, end: 20060105
  4. LIDOCAINE [Suspect]
     Indication: LIMB INJURY
     Dosage: 3 ML Q 6-8W INTRA-ARTICU
     Route: 014
     Dates: start: 20051101, end: 20060105
  5. LIDOCAINE [Suspect]
     Indication: PAIN
     Dosage: 3 ML Q 6-8W INTRA-ARTICU
     Route: 014
     Dates: start: 20051101, end: 20060105
  6. LIDOCAINE [Suspect]
     Indication: ROAD TRAFFIC ACCIDENT
     Dosage: 3 ML Q 6-8W INTRA-ARTICU
     Route: 014
     Dates: start: 20051101, end: 20060105
  7. EFFEXOR [Concomitant]
  8. SELECTIVE SEROTONIN REUPTAKE INHIBITOR (SSRI) [Concomitant]

REACTIONS (4)
  - IDIOSYNCRATIC DRUG REACTION [None]
  - INJECTION SITE ERYTHEMA [None]
  - INJECTION SITE PAIN [None]
  - PRURITUS [None]
